FAERS Safety Report 26192964 (Version 1)
Quarter: 2025Q4

REPORT INFORMATION
  Report Type: Report from Study
  Country: US (occurrence: US)
  Receive Date: 20251223
  Receipt Date: 20251223
  Transmission Date: 20260118
  Serious: Yes (Hospitalization, Other)
  Sender: ALEXION PHARMACEUTICALS
  Company Number: US-ASTRAZENECA-202512GLO015622US

PATIENT
  Age: 58 Year
  Sex: Male
  Weight: 73 kg

DRUGS (4)
  1. ACALABRUTINIB [Suspect]
     Active Substance: ACALABRUTINIB
     Indication: Mantle cell lymphoma
     Dosage: 100 MILLIGRAM, BID
     Route: 061
     Dates: start: 20231024
  2. VENETOCLAX [Suspect]
     Active Substance: VENETOCLAX
     Dosage: UNK
     Route: 065
  3. OBINUTUZUMAB [Suspect]
     Active Substance: OBINUTUZUMAB
     Dosage: UNK
     Route: 065
  4. ACYCLOVIR [Concomitant]
     Active Substance: ACYCLOVIR
     Dosage: UNK
     Route: 065

REACTIONS (5)
  - Bladder hypertrophy [Recovered/Resolved]
  - Sepsis [Recovered/Resolved]
  - Pleural effusion [Recovered/Resolved]
  - Atelectasis [Recovered/Resolved]
  - Hydronephrosis [Recovered/Resolved]
